FAERS Safety Report 19817150 (Version 2)
Quarter: 2022Q1

REPORT INFORMATION
  Report Type: Spontaneous
  Country: US (occurrence: US)
  Receive Date: 20210910
  Receipt Date: 20220303
  Transmission Date: 20220423
  Serious: Yes (Other)
  Sender: FDA-Public Use
  Company Number: US-GILEAD-2021-0547509

PATIENT
  Sex: Male
  Weight: 88.435 kg

DRUGS (29)
  1. ATRIPLA [Suspect]
     Active Substance: EFAVIRENZ\EMTRICITABINE\TENOFOVIR DISOPROXIL FUMARATE
     Indication: HIV infection
     Dosage: UNK
     Route: 048
     Dates: start: 2009, end: 2017
  2. TRIUMEQ [Concomitant]
     Active Substance: ABACAVIR SULFATE\DOLUTEGRAVIR SODIUM\LAMIVUDINE
  3. HYDROCODONE [Concomitant]
     Active Substance: HYDROCODONE
  4. TOPROL XL [Concomitant]
     Active Substance: METOPROLOL SUCCINATE
  5. NAPROXEN [Concomitant]
     Active Substance: NAPROXEN
  6. CEFADROXIL [Concomitant]
     Active Substance: CEFADROXIL
  7. TRAMADOL [Concomitant]
     Active Substance: TRAMADOL
  8. CIPROFLOXACIN [Concomitant]
     Active Substance: CIPROFLOXACIN
  9. LISINOPRIL [Concomitant]
     Active Substance: LISINOPRIL
  10. NITROSTAT [Concomitant]
     Active Substance: NITROGLYCERIN
  11. PRAVASTATIN [Concomitant]
     Active Substance: PRAVASTATIN
  12. CLOPIDOGREL [Concomitant]
     Active Substance: CLOPIDOGREL BISULFATE
  13. METOPROLOL [Concomitant]
     Active Substance: METOPROLOL
  14. RANEXA [Concomitant]
     Active Substance: RANOLAZINE
  15. CARVEDILOL [Concomitant]
     Active Substance: CARVEDILOL
  16. ISOSORBIDE [Concomitant]
     Active Substance: ISOSORBIDE
  17. SPIRONOLACTONE [Concomitant]
     Active Substance: SPIRONOLACTONE
  18. SIMVASTATIN [Concomitant]
     Active Substance: SIMVASTATIN
  19. FUROSEMIDE [Concomitant]
     Active Substance: FUROSEMIDE
  20. VENTOLIN [Concomitant]
     Active Substance: ALBUTEROL SULFATE
  21. LEVAQUIN [Concomitant]
     Active Substance: LEVOFLOXACIN
  22. BYSTOLIC [Concomitant]
     Active Substance: NEBIVOLOL HYDROCHLORIDE
  23. ZOFRAN [Concomitant]
     Active Substance: ONDANSETRON HYDROCHLORIDE
  24. VALIUM [Concomitant]
     Active Substance: DIAZEPAM
  25. FENTANYL [Concomitant]
     Active Substance: FENTANYL
  26. OMEPRAZOLE [Concomitant]
     Active Substance: OMEPRAZOLE
  27. HYDRALAZINE [Concomitant]
     Active Substance: HYDRALAZINE HYDROCHLORIDE
  28. POTASSIUM CHLORIDE [Concomitant]
     Active Substance: POTASSIUM CHLORIDE
  29. BACTRIM [Concomitant]
     Active Substance: SULFAMETHOXAZOLE\TRIMETHOPRIM

REACTIONS (14)
  - Osteoporosis [Not Recovered/Not Resolved]
  - Bone density decreased [Unknown]
  - Pain [Not Recovered/Not Resolved]
  - Emotional distress [Not Recovered/Not Resolved]
  - Anxiety [Not Recovered/Not Resolved]
  - Anhedonia [Not Recovered/Not Resolved]
  - Pain in extremity [Unknown]
  - Back pain [Unknown]
  - Dysstasia [Unknown]
  - Weight decreased [Unknown]
  - Impaired work ability [Unknown]
  - Asthenia [Unknown]
  - Exercise tolerance decreased [Unknown]
  - Fatigue [Unknown]

NARRATIVE: CASE EVENT DATE: 20170101
